FAERS Safety Report 22302176 (Version 2)
Quarter: 2023Q2

REPORT INFORMATION
  Report Type: Report from Study
  Country: US (occurrence: US)
  Receive Date: 20230510
  Receipt Date: 20230512
  Transmission Date: 20230722
  Serious: No
  Sender: FDA-Public Use
  Company Number: US-002147023-NVSC2023US104009

PATIENT
  Sex: Female

DRUGS (30)
  1. CLOBETASOL [Suspect]
     Active Substance: CLOBETASOL
     Indication: Psoriasis
     Dosage: 0.05 %, BID
     Route: 061
  2. CLOBETASOL [Suspect]
     Active Substance: CLOBETASOL
     Indication: Psoriatic arthropathy
  3. CLOBETASOL [Suspect]
     Active Substance: CLOBETASOL
     Indication: Psoriasis
     Dosage: 0.05 %, BID
     Route: 061
  4. CLOBETASOL [Suspect]
     Active Substance: CLOBETASOL
     Indication: Psoriatic arthropathy
  5. TACROLIMUS [Suspect]
     Active Substance: TACROLIMUS
     Indication: Psoriasis
     Dosage: 0.1 %, BID
     Route: 061
  6. TACROLIMUS [Suspect]
     Active Substance: TACROLIMUS
     Indication: Psoriatic arthropathy
  7. ATORVASTATIN [Suspect]
     Active Substance: ATORVASTATIN
     Indication: Psoriasis
     Dosage: 40 MG
     Route: 048
  8. ATORVASTATIN [Suspect]
     Active Substance: ATORVASTATIN
     Indication: Psoriatic arthropathy
  9. METFORMIN [Suspect]
     Active Substance: METFORMIN HYDROCHLORIDE
     Indication: Psoriasis
     Dosage: 500 MG
     Route: 048
  10. METFORMIN [Suspect]
     Active Substance: METFORMIN HYDROCHLORIDE
     Indication: Psoriatic arthropathy
  11. FLUOCINONIDE [Suspect]
     Active Substance: FLUOCINONIDE
     Indication: Psoriasis
     Route: 065
  12. FLUOCINONIDE [Suspect]
     Active Substance: FLUOCINONIDE
     Indication: Psoriatic arthropathy
  13. BETAMETHASONE [Suspect]
     Active Substance: BETAMETHASONE
     Indication: Psoriasis
     Dosage: UNK
     Route: 065
  14. BETAMETHASONE [Suspect]
     Active Substance: BETAMETHASONE
     Indication: Psoriatic arthropathy
  15. CYCLOBENZAPRINE [Suspect]
     Active Substance: CYCLOBENZAPRINE
     Indication: Psoriatic arthropathy
     Dosage: 5 MG
     Route: 048
  16. CYCLOBENZAPRINE [Suspect]
     Active Substance: CYCLOBENZAPRINE
     Indication: Psoriasis
  17. AZELASTINE [Suspect]
     Active Substance: AZELASTINE
     Indication: Psoriasis
     Dosage: 137 UG
     Route: 045
  18. AZELASTINE [Suspect]
     Active Substance: AZELASTINE
     Indication: Psoriatic arthropathy
  19. GABAPENTIN [Suspect]
     Active Substance: GABAPENTIN
     Indication: Psoriatic arthropathy
     Dosage: 300 MG
     Route: 048
  20. GABAPENTIN [Suspect]
     Active Substance: GABAPENTIN
     Indication: Psoriasis
  21. KETOROLAC [Suspect]
     Active Substance: KETOROLAC TROMETHAMINE
     Indication: Psoriasis
     Dosage: 10 MG
     Route: 048
  22. KETOROLAC [Suspect]
     Active Substance: KETOROLAC TROMETHAMINE
     Indication: Psoriatic arthropathy
  23. LISINOPRIL [Suspect]
     Active Substance: LISINOPRIL
     Indication: Psoriasis
     Dosage: 5 MG
     Route: 048
  24. LISINOPRIL [Suspect]
     Active Substance: LISINOPRIL
     Indication: Psoriatic arthropathy
  25. MELOXICAM [Suspect]
     Active Substance: MELOXICAM
     Indication: Psoriasis
     Dosage: 7.5 MG
     Route: 048
  26. MELOXICAM [Suspect]
     Active Substance: MELOXICAM
     Indication: Psoriatic arthropathy
  27. PAROXETINE [Suspect]
     Active Substance: PAROXETINE
     Indication: Psoriasis
     Dosage: 20 MG (PAROXETINE HCI)
     Route: 048
  28. PAROXETINE [Suspect]
     Active Substance: PAROXETINE
     Indication: Psoriatic arthropathy
  29. CALCIPOTRIENE [Suspect]
     Active Substance: CALCIPOTRIENE
     Indication: Psoriasis
     Dosage: UNK
     Route: 065
  30. CALCIPOTRIENE [Suspect]
     Active Substance: CALCIPOTRIENE
     Indication: Psoriatic arthropathy

REACTIONS (6)
  - Arthralgia [Unknown]
  - Sacroiliitis [Unknown]
  - Pruritus [Unknown]
  - Psoriasis [Unknown]
  - Drug ineffective [Unknown]
  - Product use in unapproved indication [Unknown]
